FAERS Safety Report 9298280 (Version 1)
Quarter: 2013Q2

REPORT INFORMATION
  Report Type: Spontaneous
  Country: CA (occurrence: CA)
  Receive Date: 20130520
  Receipt Date: 20130520
  Transmission Date: 20140414
  Serious: Yes (Life-Threatening, Hospitalization)
  Sender: FDA-Public Use
  Company Number: CA-JNJFOC-20130509127

PATIENT
  Age: 52 Year
  Sex: Male
  Weight: 91.17 kg

DRUGS (10)
  1. SIMPONI [Suspect]
     Indication: PRODUCT USED FOR UNKNOWN INDICATION
     Route: 058
  2. AMLODIPINE [Concomitant]
     Route: 065
  3. FOLIC ACID [Concomitant]
     Route: 065
  4. HYDROCHLOROTHIAZIDE [Concomitant]
     Route: 065
  5. LEFLUNOMIDE [Concomitant]
     Route: 065
  6. METHOTREXATE [Concomitant]
     Route: 065
  7. PREDNISONE [Concomitant]
     Route: 065
  8. RAMIPRIL [Concomitant]
     Route: 065
  9. SULFASALAZINE [Concomitant]
     Route: 065
  10. VENLAFAXINE XR [Concomitant]
     Route: 065

REACTIONS (5)
  - Acute myeloid leukaemia [Not Recovered/Not Resolved]
  - Cardiac failure [Not Recovered/Not Resolved]
  - Cough [Recovered/Resolved]
  - Dyspnoea [Not Recovered/Not Resolved]
  - Renal failure acute [Not Recovered/Not Resolved]
